FAERS Safety Report 5319009-9 (Version None)
Quarter: 2007Q2

REPORT INFORMATION
  Report Type: 
  Country: None (occurrence: None)
  Receive Date: 20070503
  Receipt Date: 20070503
  Transmission Date: 20071010
  Serious: Yes (Hospitalization)
  Sender: FDA-Public Use
  Company Number: None

PATIENT
  Age: 90 Year
  Sex: Male

DRUGS (2)
  1. ASPIRIN [Suspect]
     Indication: ATRIAL FIBRILLATION
     Dosage: 81 MG  DAILY  PO
     Route: 048
     Dates: start: 20070115, end: 20070117
  2. LOVENOX [Suspect]
     Indication: ATRIAL FIBRILLATION
     Dosage: 30 MG  Q12H  SQ
     Route: 058
     Dates: start: 20070116, end: 20070117

REACTIONS (2)
  - COAGULOPATHY [None]
  - HAEMOTHORAX [None]
